FAERS Safety Report 19000550 (Version 2)
Quarter: 2021Q1

REPORT INFORMATION
  Report Type: Spontaneous
  Country: US (occurrence: US)
  Receive Date: 20210312
  Receipt Date: 20210331
  Transmission Date: 20210420
  Serious: No
  Sender: FDA-Public Use
  Company Number: US-AMGEN-USASP2021037658

PATIENT
  Age: 66 Year
  Sex: Female

DRUGS (2)
  1. KYPROLIS [Suspect]
     Active Substance: CARFILZOMIB
     Indication: PLASMA CELL MYELOMA
     Dosage: 44 MILLIGRAM
     Route: 065
     Dates: start: 20210106
  2. KYPROLIS [Suspect]
     Active Substance: CARFILZOMIB
     Dosage: 32 MILLIGRAM
     Route: 065
     Dates: start: 2021

REACTIONS (1)
  - Intercepted product preparation error [Unknown]

NARRATIVE: CASE EVENT DATE: 20210201
